FAERS Safety Report 17230229 (Version 1)
Quarter: 2020Q1

REPORT INFORMATION
  Report Type: Spontaneous
  Country: SE (occurrence: SE)
  Receive Date: 20200103
  Receipt Date: 20200103
  Transmission Date: 20200409
  Serious: Yes (Hospitalization)
  Sender: FDA-Public Use
  Company Number: SE-009507513-1912SWE012274

PATIENT
  Age: 69 Year
  Sex: Female

DRUGS (6)
  1. PANODIL [Concomitant]
     Active Substance: ACETAMINOPHEN
  2. METOJECT [Concomitant]
     Active Substance: METHOTREXATE SODIUM
     Dates: start: 2017
  3. CALCIUM (UNSPECIFIED) (+) VITAMIN D (UNSPECIFIED) [Concomitant]
     Active Substance: CALCIUM CARBONATE\VITAMIN D
  4. ALENDRONATE SODIUM. [Suspect]
     Active Substance: ALENDRONATE SODIUM
     Indication: OSTEOPOROSIS
     Dosage: 70 MILLIGRAM, QW
     Route: 048
     Dates: start: 1995, end: 2019
  5. PREDNISOLON [Concomitant]
     Active Substance: PREDNISOLONE
     Dates: start: 2017
  6. TRADOLAN [Concomitant]
     Active Substance: TRAMADOL

REACTIONS (4)
  - Stress fracture [Unknown]
  - Radius fracture [Unknown]
  - Ulna fracture [Unknown]
  - Femur fracture [Unknown]

NARRATIVE: CASE EVENT DATE: 201802
